FAERS Safety Report 5015662-8 (Version None)
Quarter: 2006Q2

REPORT INFORMATION
  Report Type: 
  Country: None (occurrence: None)
  Receive Date: 20060601
  Receipt Date: 20060413
  Transmission Date: 20061013
  Serious: Yes (Hospitalization)
  Sender: FDA-Public Use
  Company Number: JP-GLAXOSMITHKLINE-B0420425A

PATIENT
  Age: 23 Year
  Sex: Male
  Weight: 54 kg

DRUGS (26)
  1. LAMOTRIGINE [Suspect]
     Indication: LENNOX-GASTAUT SYNDROME
     Dosage: 100MG TWICE PER DAY
     Route: 048
     Dates: start: 19951009
  2. DEPAKENE [Concomitant]
     Indication: LENNOX-GASTAUT SYNDROME
     Route: 048
  3. DIAPP [Concomitant]
     Indication: LENNOX-GASTAUT SYNDROME
     Route: 054
     Dates: start: 20060412
  4. DEPAKENE [Concomitant]
     Indication: LENNOX-GASTAUT SYNDROME
     Route: 048
     Dates: start: 20060419, end: 20060422
  5. VOLTAREN [Concomitant]
     Indication: ANTIPYRESIS
     Route: 054
     Dates: start: 20060412, end: 20060426
  6. KLARICID [Concomitant]
     Route: 048
     Dates: start: 20060412, end: 20060413
  7. FIRSTCIN [Concomitant]
     Route: 042
     Dates: start: 20060413, end: 20060417
  8. MINOCYCLINE HCL [Concomitant]
     Route: 048
     Dates: start: 20060417, end: 20060419
  9. ZITHROMAC [Concomitant]
     Route: 048
     Dates: start: 20060419, end: 20060421
  10. CARBENIN [Concomitant]
     Route: 042
     Dates: start: 20060417, end: 20060501
  11. MEROPEN [Concomitant]
     Route: 042
     Dates: start: 20060502
  12. CLINDAMYCIN HCL [Concomitant]
     Route: 042
     Dates: start: 20060502, end: 20060512
  13. XYLOCAINE [Concomitant]
     Indication: THORACIC CAVITY DRAINAGE
     Route: 058
     Dates: start: 20060419, end: 20060419
  14. SOSEGON [Concomitant]
     Indication: THORACIC CAVITY DRAINAGE
     Route: 042
     Dates: start: 20060419, end: 20060419
  15. DORMICUM [Concomitant]
     Indication: THORACIC CAVITY DRAINAGE
     Route: 042
     Dates: start: 20060419, end: 20060419
  16. ABBOKINASE [Concomitant]
     Route: 042
     Dates: start: 20060420, end: 20060420
  17. WAKOBITAL [Concomitant]
     Indication: LENNOX-GASTAUT SYNDROME
     Route: 054
     Dates: start: 20060430
  18. PHENOBAL [Concomitant]
     Indication: LENNOX-GASTAUT SYNDROME
     Route: 048
     Dates: start: 20060508, end: 20060509
  19. NIZORAL [Concomitant]
     Indication: TINEA INFECTION
     Route: 061
     Dates: start: 20060510
  20. ALMETA [Concomitant]
     Route: 061
     Dates: start: 20060510
  21. JAPANESE MEDICATION [Concomitant]
     Route: 048
     Dates: start: 20060511
  22. FUNGIZONE [Concomitant]
     Route: 048
     Dates: start: 20060516
  23. THERADIA [Concomitant]
     Indication: DECUBITUS ULCER
     Route: 061
     Dates: start: 20060204, end: 20060418
  24. JAPANESE MEDICATION [Concomitant]
     Indication: DECUBITUS ULCER
     Route: 061
     Dates: start: 20060204, end: 20060418
  25. JAPANESE MEDICATION [Concomitant]
     Route: 061
     Dates: start: 20060204, end: 20060418
  26. JAPANESE MEDICATION [Concomitant]
     Route: 055
     Dates: start: 20060204, end: 20060418

REACTIONS (8)
  - C-REACTIVE PROTEIN INCREASED [None]
  - COUGH [None]
  - PLEURAL EFFUSION [None]
  - PNEUMONIA [None]
  - PRODUCTIVE COUGH [None]
  - PYOTHORAX [None]
  - PYREXIA [None]
  - WHITE BLOOD CELL COUNT INCREASED [None]
